FAERS Safety Report 11293222 (Version 1)
Quarter: 2015Q3

REPORT INFORMATION
  Report Type: Spontaneous
  Country: IL (occurrence: IL)
  Receive Date: 20150722
  Receipt Date: 20150722
  Transmission Date: 20151125
  Serious: Yes (Hospitalization)
  Sender: FDA-Public Use
  Company Number: IL-MYLANLABS-2015M1024272

PATIENT

DRUGS (1)
  1. METHOTREXATE [Suspect]
     Active Substance: METHOTREXATE
     Route: 065

REACTIONS (4)
  - Pancytopenia [Recovered/Resolved]
  - Mucosal inflammation [Recovered/Resolved]
  - Toxicity to various agents [Recovered/Resolved]
  - Incorrect dose administered [Unknown]
